FAERS Safety Report 10310155 (Version 1)
Quarter: 2014Q3

REPORT INFORMATION
  Report Type: Spontaneous
  Country: US (occurrence: None)
  Receive Date: 20140715
  Receipt Date: 20140715
  Transmission Date: 20150326
  Serious: Yes (Life-Threatening, Disabling)
  Sender: FDA-Public Use
  Company Number: None

PATIENT
  Age: 17 Year
  Sex: Male
  Weight: 61.24 kg

DRUGS (1)
  1. ABILIFY [Suspect]
     Active Substance: ARIPIPRAZOLE
     Indication: TOURETTE^S DISORDER
     Dosage: 1 PILL - 2 PILLS ONCE DAILY TAKEN BY MOUTH
     Route: 048
     Dates: start: 20100729, end: 20110830

REACTIONS (40)
  - Panic disorder [None]
  - Tremor [None]
  - Akathisia [None]
  - Emotional disorder [None]
  - Tic [None]
  - Mental disorder [None]
  - Obsessive-compulsive disorder [None]
  - Migraine [None]
  - Psychotic disorder [None]
  - Depression [None]
  - Coma [None]
  - Vomiting [None]
  - Schizophrenia [None]
  - Incontinence [None]
  - Parkinson^s disease [None]
  - Fatigue [None]
  - Dysaesthesia [None]
  - Drug withdrawal syndrome [None]
  - Intentional self-injury [None]
  - Personality change [None]
  - Insomnia [None]
  - Haemorrhoids [None]
  - Respiratory disorder [None]
  - Obsessive thoughts [None]
  - Anhedonia [None]
  - Rebound effect [None]
  - Gastrooesophageal reflux disease [None]
  - Thinking abnormal [None]
  - Body dysmorphic disorder [None]
  - Neuropathy peripheral [None]
  - Dementia Alzheimer^s type [None]
  - Fear [None]
  - Attention deficit/hyperactivity disorder [None]
  - Hypophagia [None]
  - Tardive dyskinesia [None]
  - Genital disorder male [None]
  - Sensory loss [None]
  - Nightmare [None]
  - Suicidal ideation [None]
  - Speech disorder [None]

NARRATIVE: CASE EVENT DATE: 20100729
